FAERS Safety Report 10222561 (Version 1)
Quarter: 2014Q2

REPORT INFORMATION
  Report Type: Spontaneous
  Country: US (occurrence: US)
  Receive Date: 20140606
  Receipt Date: 20140606
  Transmission Date: 20141212
  Serious: No
  Sender: FDA-Public Use
  Company Number: US-MYLANLABS-2014S1001054

PATIENT
  Age: 72 Year
  Sex: Male
  Weight: 72.58 kg

DRUGS (8)
  1. DOXEPIN HYDROCHLORIDE CAPSULES, USP [Suspect]
     Indication: INSOMNIA
     Route: 048
  2. DOXEPIN HYDROCHLORIDE CAPSULES, USP [Suspect]
     Indication: OFF LABEL USE
     Route: 048
  3. DOXEPIN HYDROCHLORIDE CAPSULES, USP [Suspect]
     Indication: INSOMNIA
     Route: 048
  4. DOXEPIN HYDROCHLORIDE CAPSULES, USP [Suspect]
     Indication: OFF LABEL USE
     Route: 048
  5. ZOLPIDEM TARTRATE TABLETS [Suspect]
     Indication: INSOMNIA
     Route: 048
  6. ALPRAZOLAM [Suspect]
     Dates: start: 1992, end: 2013
  7. DIVALPROEX [Suspect]
     Route: 048
  8. LEVOTHYROXINE [Concomitant]

REACTIONS (3)
  - Gait disturbance [Recovered/Resolved]
  - Fatigue [Recovered/Resolved]
  - Drug interaction [Recovered/Resolved]
